FAERS Safety Report 10886548 (Version 2)
Quarter: 2015Q2

REPORT INFORMATION
  Report Type: Report from Study
  Country: JP (occurrence: JP)
  Receive Date: 20150304
  Receipt Date: 20150519
  Transmission Date: 20150821
  Serious: Yes (Other)
  Sender: FDA-Public Use
  Company Number: JP-GLAXOSMITHKLINE-JP2015JPN024713

PATIENT
  Age: 73 Year
  Sex: Male
  Weight: 51 kg

DRUGS (3)
  1. PAZOPANIB [Suspect]
     Active Substance: PAZOPANIB
     Indication: SPINDLE CELL SARCOMA
     Dosage: 200 MG, QD
     Route: 048
     Dates: start: 20130723, end: 20140109
  2. TAKEPRON [Concomitant]
     Active Substance: LANSOPRAZOLE
  3. RANMARK [Concomitant]
     Active Substance: DENOSUMAB
     Indication: METASTASES TO BONE
     Dosage: UNK
     Dates: start: 20130426, end: 20131017

REACTIONS (1)
  - Renal impairment [Not Recovered/Not Resolved]

NARRATIVE: CASE EVENT DATE: 20130808
